FAERS Safety Report 13345416 (Version 1)
Quarter: 2017Q1

REPORT INFORMATION
  Report Type: Spontaneous
  Country: GB (occurrence: US)
  Receive Date: 20170316
  Receipt Date: 20170316
  Transmission Date: 20170428
  Serious: Yes (Other)
  Sender: FDA-Public Use
  Company Number: None

PATIENT
  Age: 43 Day
  Sex: Female
  Weight: 54 kg

DRUGS (3)
  1. SAFFLOWER OIL GINGER [Concomitant]
  2. HUMIRA [Suspect]
     Active Substance: ADALIMUMAB
     Indication: INFERTILITY
     Dosage: QUANTITY:2 INJECTION(S);OTHER FREQUENCY:2INJECTIONS SPACED;OTHER ROUTE:INJECTION IN ABDOMAN OR LEG?
     Dates: start: 20160915, end: 20161217
  3. PREGNACARE VITAMIN D + K [Concomitant]

REACTIONS (5)
  - Muscle spasms [None]
  - Abdominal pain [None]
  - Back pain [None]
  - Menstrual disorder [None]
  - Menorrhagia [None]

NARRATIVE: CASE EVENT DATE: 20161212
